FAERS Safety Report 8174302-X (Version None)
Quarter: 2012Q1

REPORT INFORMATION
  Report Type: 
  Country: None (occurrence: None)
  Receive Date: 20120229
  Receipt Date: 20120220
  Transmission Date: 20120608
  Serious: Yes (Hospitalization)
  Sender: FDA-Public Use
  Company Number: US-JNJFOC-20071201231

PATIENT
  Sex: Female
  Weight: 62.14 kg

DRUGS (17)
  1. GOLIMUMAB [Suspect]
     Dosage: WEEK 32
     Route: 058
     Dates: start: 20071023
  2. GOLIMUMAB [Suspect]
     Route: 058
     Dates: start: 20080102
  3. PLACEBO [Suspect]
     Indication: RHEUMATOID ARTHRITIS
     Dosage: WEEK 4
     Route: 058
     Dates: start: 20070411
  4. PLACEBO [Suspect]
     Dosage: WEEK 8
     Route: 058
     Dates: start: 20070507
  5. CLARITIN-D [Concomitant]
     Route: 048
     Dates: start: 20070512
  6. METHOTREXATE [Concomitant]
     Route: 048
     Dates: start: 20060131
  7. GOLIMUMAB [Suspect]
     Indication: RHEUMATOID ARTHRITIS
     Route: 058
     Dates: start: 20071212
  8. GOLIMUMAB [Suspect]
     Dosage: WEEK 24
     Route: 058
     Dates: start: 20070828
  9. FOLIC ACID [Concomitant]
     Route: 048
     Dates: start: 20060131
  10. PLACEBO [Suspect]
     Dosage: WEEK 20
     Route: 058
     Dates: start: 20070801
  11. GOLIMUMAB [Suspect]
     Dosage: WEEK 28
     Route: 058
     Dates: start: 20070926
  12. GOLIMUMAB [Suspect]
     Route: 058
     Dates: start: 20080123
  13. PLACEBO [Suspect]
     Dosage: WEEK 0
     Route: 058
     Dates: start: 20070314
  14. PREDNISONE [Concomitant]
     Route: 048
     Dates: start: 19950705
  15. GOLIMUMAB [Suspect]
     Route: 058
     Dates: start: 20080213
  16. PLACEBO [Suspect]
     Dosage: WEEK 12
     Route: 058
     Dates: start: 20070606
  17. ORTHO-NOVUM [Concomitant]
     Indication: OSTEOPOROSIS PROPHYLAXIS

REACTIONS (2)
  - HIP FRACTURE [None]
  - LOWER LIMB FRACTURE [None]
